FAERS Safety Report 10099239 (Version 2)
Quarter: 2014Q2

REPORT INFORMATION
  Report Type: Spontaneous
  Country: US (occurrence: US)
  Receive Date: 20140423
  Receipt Date: 20140423
  Transmission Date: 20141212
  Serious: No
  Sender: FDA-Public Use
  Company Number: US-GILEAD-2012-0066377

PATIENT
  Sex: Female

DRUGS (4)
  1. LETAIRIS [Suspect]
     Indication: SCLERODERMA
     Dosage: 10 MG, QD
     Dates: start: 20110709
  2. LETAIRIS [Suspect]
     Indication: PULMONARY HYPERTENSION
  3. REVATIO [Concomitant]
  4. VENTAVIS [Concomitant]

REACTIONS (1)
  - Malaise [Unknown]
